FAERS Safety Report 10831210 (Version 1)
Quarter: 2015Q1

REPORT INFORMATION
  Report Type: Report from Study
  Country: US (occurrence: US)
  Receive Date: 20150219
  Receipt Date: 20150219
  Transmission Date: 20150721
  Serious: No
  Sender: FDA-Public Use
  Company Number: US-ABBVIE-14P-163-1192331-00

PATIENT
  Age: 65 Year
  Sex: Male

DRUGS (4)
  1. HUMIRA [Suspect]
     Active Substance: ADALIMUMAB
     Indication: PSORIASIS
     Dates: start: 20110820
  2. VESICARE [Concomitant]
     Active Substance: SOLIFENACIN SUCCINATE
     Indication: PRODUCT USED FOR UNKNOWN INDICATION
  3. PRESCRIPTON EYE DROPS [Concomitant]
     Indication: PRODUCT USED FOR UNKNOWN INDICATION
  4. BENAZEPRIL [Concomitant]
     Active Substance: BENAZEPRIL\BENAZEPRIL HYDROCHLORIDE
     Indication: BLOOD PRESSURE

REACTIONS (1)
  - Incorrect drug administration duration [Recovered/Resolved]

NARRATIVE: CASE EVENT DATE: 20140108
